FAERS Safety Report 8493880-4 (Version None)
Quarter: 2012Q3

REPORT INFORMATION
  Report Type: 
  Country: None (occurrence: None)
  Receive Date: 20120706
  Receipt Date: 20120628
  Transmission Date: 20120928
  Serious: Yes (Other)
  Sender: FDA-Public Use
  Company Number: US-RB-040269-12

PATIENT
  Sex: Female

DRUGS (5)
  1. SUBUTEX [Suspect]
     Indication: PREGNANCY
     Route: 065
     Dates: start: 20070111, end: 20070530
  2. SUBOXONE [Suspect]
     Route: 065
     Dates: start: 20060701, end: 20070110
  3. SUBOXONE [Suspect]
     Indication: SUBSTANCE ABUSE
     Route: 065
     Dates: start: 20070531
  4. MEDROXYPROGESTERONE [Concomitant]
     Indication: PRODUCT USED FOR UNKNOWN INDICATION
     Dosage: INJECTION
     Route: 065
     Dates: start: 20061227
  5. SUBUTEX [Suspect]
     Route: 065
     Dates: start: 20070111, end: 20070530

REACTIONS (2)
  - MATERNAL EXPOSURE DURING PREGNANCY [None]
  - STILLBIRTH [None]
